FAERS Safety Report 10452079 (Version 2)
Quarter: 2014Q4

REPORT INFORMATION
  Report Type: Spontaneous
  Country: IT (occurrence: IT)
  Receive Date: 20140915
  Receipt Date: 20141204
  Transmission Date: 20150528
  Serious: Yes (Other)
  Sender: FDA-Public Use
  Company Number: IT-SA-2014SA123971

PATIENT
  Age: 77 Year
  Sex: Female

DRUGS (6)
  1. CARVEDILOL. [Suspect]
     Active Substance: CARVEDILOL
     Route: 048
     Dates: start: 20140101, end: 20140720
  2. ADALAT [Suspect]
     Active Substance: NIFEDIPINE
     Route: 065
     Dates: start: 20140101, end: 20140720
  3. CARDURA [Suspect]
     Active Substance: DOXAZOSIN MESYLATE
     Route: 048
     Dates: start: 20140101, end: 20140720
  4. HUMALOG [Suspect]
     Active Substance: INSULIN LISPRO
     Route: 058
     Dates: start: 20140101, end: 20140720
  5. ISOSORBIDE MONONITRATE. [Suspect]
     Active Substance: ISOSORBIDE MONONITRATE
     Route: 048
     Dates: start: 20140101, end: 20140720
  6. LANTUS [Suspect]
     Active Substance: INSULIN GLARGINE
     Route: 051
     Dates: start: 20140101, end: 20140720

REACTIONS (1)
  - Syncope [Recovering/Resolving]

NARRATIVE: CASE EVENT DATE: 20140720
